FAERS Safety Report 14179407 (Version 1)
Quarter: 2017Q4

REPORT INFORMATION
  Report Type: Spontaneous
  Country: US (occurrence: US)
  Receive Date: 20171111
  Receipt Date: 20171111
  Transmission Date: 20180321
  Serious: No
  Sender: FDA-Public Use
  Company Number: US-TEVA-805614ACC

PATIENT
  Sex: Female

DRUGS (1)
  1. AMLODIPINE W/HYDROCHLOROTHIAZIDE W/OLMESARTAN [Suspect]
     Active Substance: AMLODIPINE BESYLATE\HYDROCHLOROTHIAZIDE\OLMESARTAN MEDOXOMIL
     Indication: HYPERTENSION
     Dosage: 40, 5, 12.5  (UNITS UNSPECIFIED)
     Dates: start: 20170808, end: 20170812

REACTIONS (6)
  - Dizziness [Recovered/Resolved]
  - Product substitution issue [None]
  - Feeding disorder [Recovered/Resolved]
  - Nausea [Recovered/Resolved]
  - Headache [Recovered/Resolved]
  - Product substitution issue [Unknown]

NARRATIVE: CASE EVENT DATE: 20170808
